FAERS Safety Report 13006764 (Version 1)
Quarter: 2016Q4

REPORT INFORMATION
  Report Type: Spontaneous
  Country: US (occurrence: US)
  Receive Date: 20161207
  Receipt Date: 20161207
  Transmission Date: 20170207
  Serious: Yes (Other)
  Sender: FDA-Public Use
  Company Number: US-CELGENEUS-USA-2016117726

PATIENT

DRUGS (1)
  1. POMALYST [Suspect]
     Active Substance: POMALIDOMIDE
     Indication: CHRONIC GRAFT VERSUS HOST DISEASE
     Route: 048

REACTIONS (11)
  - Neutropenia [Unknown]
  - Upper respiratory tract infection [Unknown]
  - Skin infection [Unknown]
  - Tremor [Unknown]
  - Anaemia [Unknown]
  - Lymphopenia [Unknown]
  - Rash [Unknown]
  - Bradycardia [Unknown]
  - Lung infection [Unknown]
  - Transaminases increased [Unknown]
  - Fatigue [Unknown]
